FAERS Safety Report 6907028-8 (Version None)
Quarter: 2010Q3

REPORT INFORMATION
  Report Type: 
  Country: None (occurrence: None)
  Receive Date: 20100802
  Receipt Date: 20100719
  Transmission Date: 20110219
  Serious: No
  Sender: FDA-Public Use
  Company Number: SPI201000187

PATIENT
  Age: 52 Year
  Sex: Female
  Weight: 77.1 kg

DRUGS (4)
  1. AMITIZA [Suspect]
     Indication: CONSTIPATION
     Dosage: 24 MCG, BID, ORAL
     Route: 048
     Dates: start: 20100710, end: 20100716
  2. PROGESTERONE [Concomitant]
  3. ERYTHROCIN (ERYTHROMYCIN) [Concomitant]
  4. EVAMIST [Concomitant]

REACTIONS (4)
  - CHEST DISCOMFORT [None]
  - FATIGUE [None]
  - PAIN [None]
  - SOMNOLENCE [None]
